FAERS Safety Report 5512744-9 (Version None)
Quarter: 2007Q4

REPORT INFORMATION
  Report Type: 
  Country: None (occurrence: None)
  Receive Date: 20071112
  Receipt Date: 20071031
  Transmission Date: 20080405
  Serious: Yes (Hospitalization, Disabling)
  Sender: FDA-Public Use
  Company Number: AR-ROCHE-523021

PATIENT
  Age: 16 Year
  Sex: Female
  Weight: 60 kg

DRUGS (33)
  1. MYCOPHENOLATE MOFETIL [Suspect]
     Indication: LUPUS NEPHRITIS
     Dosage: LAST DOSE RECEIVED ON 4 FEBRUARY 2007.
     Route: 048
     Dates: start: 20060822
  2. MYCOPHENOLATE MOFETIL [Suspect]
     Indication: LUPUS NEPHRITIS
     Dosage: THERAPY PERMANENTLY DISCONTINUED.
     Route: 048
     Dates: start: 20070417, end: 20071002
  3. MYCOPHENOLATE MOFETIL [Suspect]
     Dosage: LAST DOSE RECEIVED ON 16 APRIL 2007.
     Route: 048
     Dates: start: 20070205
  4. AZATHIOPRINE [Suspect]
     Indication: LUPUS NEPHRITIS
     Dosage: THERAPY PERMANENTLY DISCONTINUED.
     Route: 048
     Dates: start: 20070417, end: 20071002
  5. AZATHIOPRINE [Suspect]
     Dosage: LAST DOSE RECEIVED ON 16 APRIL 2007.
     Route: 048
     Dates: start: 20070205
  6. METHYLPREDNISOLONE [Suspect]
     Indication: LUPUS NEPHRITIS
     Dosage: REPORTED AS METHYLPREDNISONE.
     Route: 048
     Dates: start: 20061114, end: 20071002
  7. METHYLPREDNISOLONE [Suspect]
     Dosage: 1000MG EVERY OTHER DAY.
     Route: 048
     Dates: start: 20071003
  8. CYCLOPHOSPHAMIDE [Suspect]
     Indication: LUPUS NEPHRITIS
     Route: 042
     Dates: start: 20071008, end: 20071008
  9. FUROSEMIDE [Concomitant]
     Dates: start: 20070604, end: 20071001
  10. FUROSEMIDE [Concomitant]
     Dates: start: 20071002, end: 20071002
  11. FUROSEMIDE [Concomitant]
     Dates: start: 20071003, end: 20071003
  12. FUROSEMIDE [Concomitant]
     Dates: start: 20071005
  13. LOSARTAN POTASSIUM [Concomitant]
     Dates: start: 20060808, end: 20071003
  14. LOSARTAN POTASSIUM [Concomitant]
     Dates: start: 20071004
  15. OMEPRAZOLE [Concomitant]
     Dates: start: 20070411
  16. OMEPRAZOLE [Concomitant]
     Dates: start: 20071002
  17. YECTAFER [Concomitant]
     Dosage: REPORTED AS YECTAFER COMPLEX - FOLIC ACID
     Dates: start: 20070925, end: 20070930
  18. YECTAFER [Concomitant]
     Dosage: REPORTED AS YECTAFER COMPLEX - FERRUM
     Dates: start: 20070925, end: 20070930
  19. YECTAFER [Concomitant]
     Dosage: REPORTED AS YECTAFER COMPLEX - VITAMIN B12
     Dates: start: 20070925, end: 20070930
  20. FOLIC ACID [Concomitant]
     Dates: start: 20070925, end: 20070930
  21. FERRUM [Concomitant]
     Dates: start: 20070925, end: 20070930
  22. VITAMIN B-12 [Concomitant]
     Dates: start: 20070925, end: 20070930
  23. 1 CONCOMITANT DRUG [Concomitant]
     Dosage: DRUG REPORTED AS CALCIUM BICARBONATE
     Dates: start: 20070622, end: 20071001
  24. SUCRALFATE [Concomitant]
     Dates: start: 20070305, end: 20071001
  25. MEPREDNISONE [Concomitant]
     Dates: start: 20071008
  26. LEVOFLOXACIN [Concomitant]
     Dates: start: 20071002, end: 20071002
  27. LEVOFLOXACIN [Concomitant]
     Dates: start: 20071003, end: 20071003
  28. LEVOFLOXACIN [Concomitant]
     Dates: start: 20071004, end: 20071006
  29. AMLODIPINE [Concomitant]
     Dates: start: 20071002, end: 20071003
  30. AMLODIPINE [Concomitant]
     Dates: start: 20071004
  31. NYSTATIN [Concomitant]
     Dosage: TOTAL DAILY DOSE REPORTED AS 300000 UI.
     Dates: start: 20071005, end: 20071007
  32. PANTOPRAZOLE SODIUM [Concomitant]
     Dates: start: 20071002, end: 20071002
  33. BLOOD TRANSFUSION [Concomitant]
     Dates: start: 20071004, end: 20071004

REACTIONS (12)
  - BLOOD IMMUNOGLOBULIN G INCREASED [None]
  - BLOOD IMMUNOGLOBULIN M INCREASED [None]
  - CARDIOMEGALY [None]
  - HYPERTENSION [None]
  - INFECTION [None]
  - LUPUS NEPHRITIS [None]
  - LYMPHADENOPATHY [None]
  - ODYNOPHAGIA [None]
  - OLIGURIA [None]
  - SYSTEMIC LUPUS ERYTHEMATOSUS [None]
  - TACHYPNOEA [None]
  - TRACHEITIS [None]
